FAERS Safety Report 9242415 (Version 1)
Quarter: 2013Q2

REPORT INFORMATION
  Report Type: Spontaneous
  Country: US (occurrence: US)
  Receive Date: 20130419
  Receipt Date: 20130419
  Transmission Date: 20140414
  Serious: No
  Sender: FDA-Public Use
  Company Number: US-PFIZER INC-2013119793

PATIENT
  Age: 66 Year
  Sex: Female
  Weight: 87.98 kg

DRUGS (7)
  1. LEVOXYL [Suspect]
     Indication: HYPOTHYROIDISM
     Dosage: 125 UG, 1X/DAY
     Route: 048
  2. OMEPRAZOLE [Concomitant]
     Dosage: UNK
  3. METFORMIN [Concomitant]
     Dosage: UNK
  4. CITALOPRAM [Concomitant]
     Dosage: UNK
  5. SIMVASTATIN [Concomitant]
     Dosage: UNK
  6. LOSARTAN [Concomitant]
     Dosage: UNK
  7. LETROZOLE [Concomitant]
     Dosage: UNK

REACTIONS (3)
  - Poor quality drug administered [Unknown]
  - Product quality issue [Unknown]
  - Laboratory test abnormal [Unknown]
